FAERS Safety Report 5514945-2 (Version None)
Quarter: 2007Q4

REPORT INFORMATION
  Report Type: 
  Country: None (occurrence: None)
  Receive Date: 20071113
  Receipt Date: 20070609
  Transmission Date: 20080405
  Serious: No
  Sender: FDA-Public Use
  Company Number: A0623884A

PATIENT
  Age: 74 Year
  Sex: Female

DRUGS (8)
  1. COREG [Suspect]
     Dosage: 25MG TWICE PER DAY
     Route: 048
  2. ZYRTEC [Concomitant]
  3. PREVACID [Concomitant]
  4. ALTACE [Concomitant]
  5. UNKNOWN MEDICATION [Concomitant]
  6. TRAVATAN [Concomitant]
  7. FLONASE [Concomitant]
  8. NORVASC [Concomitant]

REACTIONS (2)
  - DRY EYE [None]
  - WEIGHT INCREASED [None]
